FAERS Safety Report 6538233-0 (Version None)
Quarter: 2010Q1

REPORT INFORMATION
  Report Type: 
  Country: None (occurrence: None)
  Receive Date: 20100112
  Receipt Date: 20100112
  Transmission Date: 20100710
  Serious: No
  Sender: FDA-Public Use
  Company Number: None

PATIENT
  Age: 31 Year
  Sex: Female
  Weight: 88.4514 kg

DRUGS (1)
  1. SYMBICORT [Suspect]
     Indication: ASTHMA
     Dosage: 2 INHALATIONS 2X DAILY, -AM/PM- INHAL
     Route: 055
     Dates: start: 20080101

REACTIONS (1)
  - CHEST DISCOMFORT [None]
